FAERS Safety Report 5812132-1 (Version None)
Quarter: 2008Q3

REPORT INFORMATION
  Report Type: 
  Country: None (occurrence: None)
  Receive Date: 20080714
  Receipt Date: 20080702
  Transmission Date: 20090109
  Serious: Yes (Life-Threatening, Hospitalization)
  Sender: FDA-Public Use
  Company Number: GXKR2008GB04222

PATIENT
  Age: 65 Year
  Sex: Male

DRUGS (5)
  1. ACETYLSALICYLIC ACID SRT [Suspect]
     Indication: CARDIOVASCULAR EVENT PROPHYLAXIS
     Dosage: 75 MG, QD, ORAL
     Route: 048
     Dates: end: 20080615
  2. LISINOPRIL [Suspect]
     Indication: HYPERTENSION
     Dosage: 10 MG, QD, ORAL
     Route: 048
     Dates: end: 20080615
  3. METFORMIN HCL [Suspect]
     Indication: DIABETES MELLITUS
     Dosage: 500 MG, QD, ORAL
     Route: 048
     Dates: end: 20080615
  4. AMLODIPINE [Concomitant]
  5. GLYBURIDE [Concomitant]

REACTIONS (3)
  - HAEMODIALYSIS [None]
  - POST PROCEDURAL COMPLICATION [None]
  - RENAL FAILURE [None]
